FAERS Safety Report 8012180-X (Version None)
Quarter: 2011Q4

REPORT INFORMATION
  Report Type: 
  Country: None (occurrence: None)
  Receive Date: 20111228
  Receipt Date: 20111205
  Transmission Date: 20120403
  Serious: Yes (Other)
  Sender: FDA-Public Use
  Company Number: FR-PFIZER INC-2011301098

PATIENT
  Sex: Female

DRUGS (1)
  1. ARGATROBAN [Suspect]
     Dosage: 2 MCG/MIN (1 IN 1 D)
     Route: 042

REACTIONS (4)
  - BLOOD FIBRINOGEN DECREASED [None]
  - PROTHROMBIN TIME SHORTENED [None]
  - DISSEMINATED INTRAVASCULAR COAGULATION [None]
  - HAEMORRHAGE [None]
